FAERS Safety Report 22342417 (Version 6)
Quarter: 2024Q1

REPORT INFORMATION
  Report Type: Other
  Country: DE (occurrence: None)
  Receive Date: 20230519
  Receipt Date: 20240328
  Transmission Date: 20240410
  Serious: No
  Sender: FDA-Public Use
  Company Number: DE-ROCHE-2544348

PATIENT
  Age: 33 Year
  Sex: Female

DRUGS (5)
  1. OCREVUS [Suspect]
     Active Substance: OCRELIZUMAB
     Indication: Relapsing-remitting multiple sclerosis
     Dosage: SUBSEQUENT DOSE 600 MG ADMINISTERED AFTER 189 DAYS, 182 DAYS, 190 DAYS
     Route: 042
     Dates: start: 20181107, end: 20230214
  2. OCREVUS [Suspect]
     Active Substance: OCRELIZUMAB
     Route: 042
     Dates: start: 20201215
  3. OCREVUS [Suspect]
     Active Substance: OCRELIZUMAB
     Dosage: THE MOST RECENT INFUSION (8TH MAINTENANCE DOSE) WAS ADMINISTERED ON 14/FEB/2023.
     Route: 042
     Dates: start: 20210812
  4. VITAMIN D3 [Concomitant]
     Active Substance: CHOLECALCIFEROL
  5. OFATUMUMAB [Concomitant]
     Active Substance: OFATUMUMAB

REACTIONS (21)
  - Headache [Recovered/Resolved]
  - Myalgia [Recovered/Resolved]
  - Fall [Unknown]
  - Fractured coccyx [Recovering/Resolving]
  - Pain [Recovered/Resolved]
  - Cystitis noninfective [Recovered/Resolved]
  - Bladder disorder [Not Recovered/Not Resolved]
  - Fatigue [Recovered/Resolved]
  - Platelet count increased [Recovered/Resolved]
  - Pollakiuria [Recovered/Resolved]
  - Vulvovaginal mycotic infection [Recovered/Resolved]
  - Stress [Recovered/Resolved]
  - Pyrexia [Recovered/Resolved]
  - Cystitis noninfective [Recovered/Resolved]
  - Heart rate increased [Recovered/Resolved]
  - Diarrhoea [Recovered/Resolved]
  - Gastrointestinal pain [Recovered/Resolved]
  - Dyspepsia [Recovered/Resolved]
  - Helicobacter infection [Recovered/Resolved]
  - Maternal exposure before pregnancy [Unknown]
  - Nasopharyngitis [Recovered/Resolved]

NARRATIVE: CASE EVENT DATE: 20190501
